FAERS Safety Report 24710095 (Version 1)
Quarter: 2024Q4

REPORT INFORMATION
  Report Type: Spontaneous
  Country: US (occurrence: US)
  Receive Date: 20241209
  Receipt Date: 20241209
  Transmission Date: 20250114
  Serious: No
  Sender: PADAGIS
  Company Number: US-PADAGIS-2024PAD01872

PATIENT

DRUGS (4)
  1. MUPIROCIN [Suspect]
     Active Substance: MUPIROCIN
     Indication: Skin lesion inflammation
     Dosage: UNK, TID
     Route: 065
  2. NEOMYCIN [Concomitant]
     Active Substance: NEOMYCIN
     Indication: Skin lesion inflammation
     Dosage: UNK, SELF-TREATED SPORADICALLY
     Route: 061
  3. POLYMYXIN B [Concomitant]
     Active Substance: POLYMYXIN B
     Indication: Skin lesion inflammation
     Dosage: UNK, SELF-TREATED SPORADICALLY
     Route: 065
  4. BACITRACIN [Concomitant]
     Active Substance: BACITRACIN
     Indication: Skin lesion inflammation
     Dosage: UNK, SELF-TREATED SPORADICALLY
     Route: 061

REACTIONS (2)
  - Disease progression [Unknown]
  - Drug ineffective for unapproved indication [Unknown]
